FAERS Safety Report 5907006-1 (Version None)
Quarter: 2008Q4

REPORT INFORMATION
  Report Type: 
  Country: None (occurrence: None)
  Receive Date: 20081002
  Receipt Date: 20081002
  Transmission Date: 20090506
  Serious: No
  Sender: FDA-Public Use
  Company Number: None

PATIENT
  Sex: Male
  Weight: 79.3795 kg

DRUGS (1)
  1. RANITIDINE [Suspect]
     Indication: GASTROOESOPHAGEAL REFLUX DISEASE
     Dosage: 1 TABLET TWICE DAILY PO
     Route: 048
     Dates: start: 19870101, end: 20080731

REACTIONS (3)
  - BLEPHAROSPASM [None]
  - DYSKINESIA [None]
  - DYSTONIA [None]
